FAERS Safety Report 12351433 (Version 1)
Quarter: 2016Q2

REPORT INFORMATION
  Report Type: Spontaneous
  Country: US (occurrence: None)
  Receive Date: 20160509
  Receipt Date: 20160509
  Transmission Date: 20160815
  Serious: Yes (Other)
  Sender: FDA-Public Use
  Company Number: None

PATIENT
  Age: 17 Year
  Sex: Female
  Weight: 77.11 kg

DRUGS (7)
  1. REMERON [Concomitant]
     Active Substance: MIRTAZAPINE
  2. MIRALAX [Concomitant]
     Active Substance: POLYETHYLENE GLYCOL 3350
  3. AXID [Concomitant]
     Active Substance: NIZATIDINE
  4. RESOLOR [Concomitant]
     Active Substance: PRUCALOPRIDE SUCCINATE
  5. LINZESS [Suspect]
     Active Substance: LINACLOTIDE
     Indication: GASTROINTESTINAL MOTILITY DISORDER
     Route: 048
     Dates: start: 20150901, end: 20160131
  6. EX-LAX REGULAR STRENGTH STIMULANT LAXATIVE [Concomitant]
     Active Substance: SENNOSIDES
  7. DULCOLAX NOS [Concomitant]
     Active Substance: BISACODYL OR DOCUSATE SODIUM

REACTIONS (5)
  - Abdominal distension [None]
  - Peripheral swelling [None]
  - Drug ineffective [None]
  - Swelling face [None]
  - Urine output decreased [None]

NARRATIVE: CASE EVENT DATE: 20160119
